FAERS Safety Report 5148026-7 (Version None)
Quarter: 2006Q4

REPORT INFORMATION
  Report Type: 
  Country: None (occurrence: None)
  Receive Date: 20061110
  Receipt Date: 20060905
  Transmission Date: 20070319
  Serious: Yes (Other)
  Sender: FDA-Public Use
  Company Number: JP-JPN-A200603551

PATIENT
  Age: 17 Year
  Sex: Female

DRUGS (1)
  1. ZEFIX [Suspect]
     Indication: HEPATITIS FULMINANT
     Dosage: 100MG PER DAY
     Route: 048
     Dates: start: 20041001

REACTIONS (5)
  - ABORTION INDUCED [None]
  - ABORTION SPONTANEOUS [None]
  - DRUG EXPOSURE DURING PREGNANCY [None]
  - INTRA-UTERINE DEATH [None]
  - STILLBIRTH [None]
